FAERS Safety Report 18567177 (Version 3)
Quarter: 2020Q4

REPORT INFORMATION
  Report Type: Spontaneous
  Country: CA (occurrence: CA)
  Receive Date: 20201201
  Receipt Date: 20201221
  Transmission Date: 20210114
  Serious: Yes (Hospitalization)
  Sender: FDA-Public Use
  Company Number: CA-BIOMARINAP-CA-2020-133474

PATIENT
  Age: 38 Year
  Sex: Male
  Weight: 59 kg

DRUGS (10)
  1. APO-RANITIDINE [Concomitant]
     Active Substance: RANITIDINE
     Indication: PRODUCT USED FOR UNKNOWN INDICATION
     Dosage: 150 MILLIGRAM, QD
     Route: 048
  2. M-ESLON [Concomitant]
     Active Substance: MORPHINE SULFATE
     Indication: PAIN
     Dosage: 30 MILLIGRAM, BID
     Route: 065
  3. VENLAFAXINE XR [Concomitant]
     Active Substance: VENLAFAXINE HYDROCHLORIDE
     Indication: PRODUCT USED FOR UNKNOWN INDICATION
     Dosage: 150 MILLIGRAM, QD
     Route: 065
  4. VIMIZIM [Suspect]
     Active Substance: ELOSULFASE ALFA
     Indication: MUCOPOLYSACCHARIDOSIS IV
     Dosage: 2 MILLIGRAM/KILOGRAM, QW
     Route: 042
     Dates: start: 20180524
  5. ACT PREGABALIN [Concomitant]
     Indication: PRODUCT USED FOR UNKNOWN INDICATION
     Dosage: 150 MILLIGRAM, QD
     Route: 065
  6. PANTOLOC [PANTOPRAZOLE] [Concomitant]
     Active Substance: PANTOPRAZOLE SODIUM
     Indication: PRODUCT USED FOR UNKNOWN INDICATION
     Dosage: 40 MILLIGRAM, BID
     Route: 065
  7. M-ESLON [Concomitant]
     Active Substance: MORPHINE SULFATE
     Indication: PRODUCT USED FOR UNKNOWN INDICATION
     Dosage: 10 MILLIGRAM, BID
     Route: 065
  8. DOMPERIDONE [Concomitant]
     Active Substance: DOMPERIDONE
     Indication: PRODUCT USED FOR UNKNOWN INDICATION
     Dosage: 5 MILLIGRAM, TID
     Route: 048
  9. PREGABALIN. [Concomitant]
     Active Substance: PREGABALIN
     Indication: PRODUCT USED FOR UNKNOWN INDICATION
     Dosage: 25 MILLIGRAM, TID
     Route: 065
  10. ONDANSETRON [Concomitant]
     Active Substance: ONDANSETRON
     Indication: PREMEDICATION

REACTIONS (8)
  - Weight decreased [Unknown]
  - Gastrointestinal hypomotility [Not Recovered/Not Resolved]
  - Abdominal pain upper [Not Recovered/Not Resolved]
  - Abdominal pain [Recovered/Resolved]
  - Poor quality sleep [Unknown]
  - Gastric disorder [Recovering/Resolving]
  - Nausea [Recovered/Resolved]
  - Vomiting [Recovered/Resolved]

NARRATIVE: CASE EVENT DATE: 2020
